FAERS Safety Report 10061300 (Version 2)
Quarter: 2014Q2

REPORT INFORMATION
  Report Type: Spontaneous
  Country: US (occurrence: US)
  Receive Date: 20140407
  Receipt Date: 20140506
  Transmission Date: 20141212
  Serious: No
  Sender: FDA-Public Use
  Company Number: US-009507513-1404USA000013

PATIENT
  Age: 38 Year
  Sex: Male
  Weight: 92.63 kg

DRUGS (6)
  1. JANUVIA [Suspect]
     Indication: TYPE 2 DIABETES MELLITUS
     Dosage: 100 MG, ONCE DAILY
     Route: 048
     Dates: start: 20140320
  2. PRAVASTATIN SODIUM [Concomitant]
  3. METFORMIN HYDROCHLORIDE [Concomitant]
  4. PRINIVIL [Concomitant]
     Route: 048
  5. GLIPIZIDE [Concomitant]
  6. FENOFIBRATE [Concomitant]

REACTIONS (5)
  - Skin burning sensation [Recovering/Resolving]
  - Pain [Unknown]
  - Somnolence [Recovered/Resolved]
  - Pain in extremity [Not Recovered/Not Resolved]
  - Nausea [Recovered/Resolved]
